FAERS Safety Report 13187483 (Version 3)
Quarter: 2017Q3

REPORT INFORMATION
  Report Type: Spontaneous
  Country: US (occurrence: US)
  Receive Date: 20170206
  Receipt Date: 20170921
  Transmission Date: 20171127
  Serious: Yes (Death)
  Sender: FDA-Public Use
  Company Number: US-PFIZER INC-2017044730

PATIENT
  Age: 65 Year
  Sex: Male
  Weight: 75 kg

DRUGS (2)
  1. VFEND [Suspect]
     Active Substance: VORICONAZOLE
     Indication: FUNGAL INFECTION
     Dosage: 600 MG, DAILY (TWO 50MG TWICE DAILY AND ONE 200MG TWICE DAILY)
     Dates: start: 2013
  2. VFEND [Suspect]
     Active Substance: VORICONAZOLE
     Dosage: 600 MG, DAILY (TWO 50MG TWICE DAILY AND ONE 200MG TWICE DAILY)
     Dates: start: 2013

REACTIONS (3)
  - Death [Fatal]
  - Incoherent [Unknown]
  - Cognitive disorder [Not Recovered/Not Resolved]

NARRATIVE: CASE EVENT DATE: 201610
